FAERS Safety Report 12068730 (Version 2)
Quarter: 2016Q1

REPORT INFORMATION
  Report Type: Spontaneous
  Country: CA (occurrence: CA)
  Receive Date: 20160211
  Receipt Date: 20160212
  Transmission Date: 20160526
  Serious: Yes (Other)
  Sender: FDA-Public Use
  Company Number: CA-TEVA-633742ACC

PATIENT
  Age: 82 Year
  Sex: Female

DRUGS (3)
  1. ONDANSETRON [Suspect]
     Active Substance: ONDANSETRON
     Indication: VOMITING
     Dosage: 12 MILLIGRAM DAILY;
     Route: 048
  2. ONDANSETRON [Suspect]
     Active Substance: ONDANSETRON
     Indication: NAUSEA
  3. HYDROMORPH CONTIN CONTROLLED RELEASE CAP - 3MG [Suspect]
     Active Substance: HYDROMORPHONE HYDROCHLORIDE
     Indication: CANCER PAIN
     Dosage: 6 MILLIGRAM DAILY;
     Route: 048

REACTIONS (2)
  - Somnolence [Unknown]
  - Muscle twitching [Unknown]
